FAERS Safety Report 4393617-4 (Version None)
Quarter: 2004Q3

REPORT INFORMATION
  Report Type: 
  Country: None (occurrence: None)
  Receive Date: 20040708
  Receipt Date: 20040708
  Transmission Date: 20050211
  Serious: Yes (Hospitalization, Disabling)
  Sender: FDA-Public Use
  Company Number: None

PATIENT
  Age: 30 Year
  Sex: Female
  Weight: 81.6475 kg

DRUGS (3)
  1. ANAFRANIL [Suspect]
     Indication: OBSESSIVE-COMPULSIVE DISORDER
     Dosage: 25 MG- 37.5 MG
  2. ZOLOFT [Concomitant]
  3. TRAZODONE HCL [Concomitant]

REACTIONS (15)
  - ACTIVITIES OF DAILY LIVING IMPAIRED [None]
  - ANTINUCLEAR ANTIBODY POSITIVE [None]
  - ASTHENIA [None]
  - DEHYDROEPIANDROSTERONE INCREASED [None]
  - DIZZINESS [None]
  - FEELING HOT [None]
  - FLUSHING [None]
  - HUNGER [None]
  - HYPERPHAGIA [None]
  - HYPOTHALAMO-PITUITARY DISORDERS [None]
  - IMPAIRED SELF-CARE [None]
  - NERVOUS SYSTEM DISORDER [None]
  - NUCLEAR MAGNETIC RESONANCE IMAGING BRAIN ABNORMAL [None]
  - TREMOR [None]
  - WEIGHT INCREASED [None]
